FAERS Safety Report 24636482 (Version 1)
Quarter: 2024Q4

REPORT INFORMATION
  Report Type: Spontaneous
  Country: CO (occurrence: CO)
  Receive Date: 20241119
  Receipt Date: 20241119
  Transmission Date: 20250114
  Serious: Yes (Hospitalization)
  Sender: REGENERON
  Company Number: CO-SA-2024SA333611

PATIENT
  Age: 77 Year
  Sex: Female

DRUGS (1)
  1. PRALUENT [Suspect]
     Active Substance: ALIROCUMAB
     Indication: Type IIa hyperlipidaemia
     Dosage: 75 MG, Q15D
     Route: 058

REACTIONS (6)
  - Asthenia [Unknown]
  - Pyrexia [Unknown]
  - Dengue fever [Unknown]
  - Platelet count decreased [Unknown]
  - Rash [Unknown]
  - Pruritus [Unknown]
